FAERS Safety Report 9495960 (Version 4)
Quarter: 2014Q2

REPORT INFORMATION
  Report Type: Report from Study
  Country: CA (occurrence: CA)
  Receive Date: 20130904
  Receipt Date: 20140429
  Transmission Date: 20141212
  Serious: Yes (Hospitalization, Other)
  Sender: FDA-Public Use
  Company Number: CA-ROCHE-1269678

PATIENT
  Age: 83 Year
  Sex: Female
  Weight: 65.8 kg

DRUGS (7)
  1. RANIBIZUMAB [Suspect]
     Indication: PRODUCT USED FOR UNKNOWN INDICATION
     Route: 050
     Dates: start: 20080328
  2. RANIBIZUMAB [Suspect]
     Route: 050
     Dates: start: 20130108
  3. CLONAZEPAM [Concomitant]
  4. PANTOPRAZOLE [Concomitant]
  5. SERTRALINE [Concomitant]
  6. ATIVAN [Concomitant]
  7. LISINOPRIL [Concomitant]

REACTIONS (9)
  - Vertigo positional [Recovered/Resolved]
  - Fall [Unknown]
  - Musculoskeletal chest pain [Unknown]
  - Anaemia [Recovering/Resolving]
  - Abdominal pain upper [Unknown]
  - Sinusitis [Unknown]
  - Dyspepsia [Unknown]
  - Nausea [Unknown]
  - Rib fracture [Unknown]
